FAERS Safety Report 7369134 (Version 2)
Quarter: 2014Q1

REPORT INFORMATION
  Report Type: Spontaneous
  Country: DE (occurrence: DE)
  Receive Date: 20100428
  Receipt Date: 20140114
  Transmission Date: 20141002
  Serious: Yes (Death, Hospitalization, Other)
  Sender: FDA-Public Use
  Company Number: DE-CELGENEUS-062-50794-10041313

PATIENT
  Sex: 0

DRUGS (4)
  1. VIDAZA [Suspect]
     Indication: ACUTE MYELOID LEUKAEMIA
     Route: 058
     Dates: start: 2009
  2. VIDAZA [Suspect]
     Indication: CHRONIC MYELOMONOCYTIC LEUKAEMIA
     Dosage: 125 MG OR 150 MG
     Route: 058
  3. LYMPHOCYTES [Suspect]
     Indication: ACUTE MYELOID LEUKAEMIA
     Route: 041
  4. LYMPHOCYTES [Suspect]
     Indication: CHRONIC MYELOMONOCYTIC LEUKAEMIA

REACTIONS (9)
  - Urosepsis [Fatal]
  - Leukocytosis [Unknown]
  - Neutropenic infection [Unknown]
  - Neutropenia [Unknown]
  - Disease progression [Unknown]
  - Graft versus host disease [Unknown]
  - Constipation [Unknown]
  - Diarrhoea [Unknown]
  - Skin irritation [Unknown]
